FAERS Safety Report 9039457 (Version 1)
Quarter: 2013Q1

REPORT INFORMATION
  Report Type: Spontaneous
  Country: US (occurrence: None)
  Receive Date: 20130123
  Receipt Date: 20130123
  Transmission Date: 20140127
  Serious: No
  Sender: FDA-Public Use
  Company Number: None

PATIENT
  Sex: Female
  Weight: 85.28 kg

DRUGS (1)
  1. VENLAFAXINE [Suspect]
     Indication: DYSTHYMIC DISORDER
     Dates: start: 20091014, end: 20100112

REACTIONS (3)
  - Tremor [None]
  - Disturbance in attention [None]
  - Feeling jittery [None]
